FAERS Safety Report 7509514-9 (Version None)
Quarter: 2011Q2

REPORT INFORMATION
  Report Type: 
  Country: None (occurrence: None)
  Receive Date: 20110527
  Receipt Date: 20110523
  Transmission Date: 20111010
  Serious: No
  Sender: FDA-Public Use
  Company Number: US-PFIZER INC-2011072796

PATIENT
  Sex: Female
  Weight: 60 kg

DRUGS (16)
  1. GENOTROPIN [Suspect]
     Dosage: 0.4 MG, 1X/DAY
     Route: 058
  2. EPINEPHRINE [Concomitant]
  3. VITAMIN D [Concomitant]
     Dosage: UNK
  4. BETAXOLOL [Concomitant]
     Dosage: UNK
  5. ZINC [Concomitant]
     Dosage: 30 MG, UNK
  6. BETIMOL [Concomitant]
     Dosage: 0.25 %, UNK
  7. THYROID TAB [Concomitant]
     Dosage: 30 MG, UNK
  8. MAGNESIUM GLUCEPTATE [Concomitant]
     Dosage: 200 MG, UNK
  9. LOSARTAN POTASSIUM [Concomitant]
     Dosage: 25 MG, UNK
  10. IMMUNOGLOBULIN HUMAN NORMAL [Concomitant]
     Dosage: UNK MG, UNK
  11. CO-Q-10 [Concomitant]
     Dosage: 100 MG, UNK
  12. MILK THISTLE [Concomitant]
     Dosage: UNK
  13. CORTEF [Concomitant]
     Dosage: 20 MG, UNK
  14. PROBIOTICA [Concomitant]
     Dosage: UNK
  15. ENTOCORT EC [Concomitant]
     Dosage: 3 MG, 1X/DAY
  16. VITAMIN B COMPLEX CAP [Concomitant]
     Dosage: UNK

REACTIONS (9)
  - OEDEMA PERIPHERAL [None]
  - BLOOD PRESSURE INCREASED [None]
  - PRURITUS [None]
  - ABDOMINAL PAIN UPPER [None]
  - VOMITING [None]
  - WEIGHT DECREASED [None]
  - ARTHRALGIA [None]
  - SWELLING FACE [None]
  - INSOMNIA [None]
